FAERS Safety Report 14789680 (Version 1)
Quarter: 2018Q2

REPORT INFORMATION
  Report Type: Spontaneous
  Country: US (occurrence: US)
  Receive Date: 20180413
  Receipt Date: 20180413
  Transmission Date: 20180711
  Serious: Yes (Hospitalization)
  Sender: FDA-Public Use
  Company Number: None

PATIENT
  Age: 43 Year
  Sex: Female
  Weight: 81 kg

DRUGS (1)
  1. TEMOZOLOMIDE. [Suspect]
     Active Substance: TEMOZOLOMIDE
     Dates: end: 20180324

REACTIONS (4)
  - Head injury [None]
  - Fall [None]
  - Vasogenic cerebral oedema [None]
  - Muscular weakness [None]

NARRATIVE: CASE EVENT DATE: 20180403
